FAERS Safety Report 5397805-X (Version None)
Quarter: 2007Q3

REPORT INFORMATION
  Report Type: 
  Country: None (occurrence: None)
  Receive Date: 20070724
  Receipt Date: 20070724
  Transmission Date: 20080115
  Serious: Yes (Hospitalization)
  Sender: FDA-Public Use
  Company Number: None

PATIENT
  Age: 32 Year
  Sex: Female

DRUGS (8)
  1. WARFARIN SODIUM [Suspect]
     Indication: PNEUMONIA
     Dosage: 7.5 MG DAILY PO
     Route: 048
     Dates: start: 20060323, end: 20060325
  2. MOXIFLOXACIN HCL [Suspect]
     Indication: PULMONARY EMBOLISM
     Dosage: 400 MG DAILY PO
     Route: 048
     Dates: start: 20060324, end: 20060325
  3. TRAMADOL HCL [Concomitant]
  4. ACETAMINOPHEN [Concomitant]
  5. ALBUTEROL [Concomitant]
  6. UNASYN [Concomitant]
  7. FLAGYL [Concomitant]
  8. ZOLPIDEM TARTRATE [Concomitant]

REACTIONS (1)
  - INTERNATIONAL NORMALISED RATIO INCREASED [None]
